FAERS Safety Report 8059009-1 (Version None)
Quarter: 2012Q1

REPORT INFORMATION
  Report Type: 
  Country: None (occurrence: None)
  Receive Date: 20120120
  Receipt Date: 20110318
  Transmission Date: 20120608
  Serious: No
  Sender: FDA-Public Use
  Company Number: US-BAUSCH-2011BL001713

PATIENT
  Age: 85 Year
  Sex: Female

DRUGS (3)
  1. ALAWAY [Suspect]
     Indication: EYE PRURITUS
     Route: 047
     Dates: start: 20110101
  2. ALAWAY [Suspect]
     Indication: OFF LABEL USE
     Route: 047
     Dates: start: 20110101
  3. SOOTHE XTRA HYDRATION [Concomitant]
     Indication: DRY EYE
     Route: 047
     Dates: start: 20101001

REACTIONS (1)
  - INSTILLATION SITE PAIN [None]
